FAERS Safety Report 12586648 (Version 1)
Quarter: 2016Q3

REPORT INFORMATION
  Report Type: Spontaneous
  Country: US (occurrence: US)
  Receive Date: 20160725
  Receipt Date: 20160725
  Transmission Date: 20161109
  Serious: No
  Sender: FDA-Public Use
  Company Number: US-PFIZER INC-2016334045

PATIENT
  Sex: Female

DRUGS (1)
  1. METHOTREXATE. [Suspect]
     Active Substance: METHOTREXATE
     Dosage: UNK

REACTIONS (6)
  - Paraesthesia oral [Unknown]
  - Lip blister [Unknown]
  - Lip swelling [Unknown]
  - Gingival pain [Unknown]
  - Oral herpes [Unknown]
  - Stomatitis [Unknown]
